FAERS Safety Report 5021726-5 (Version None)
Quarter: 2006Q2

REPORT INFORMATION
  Report Type: 
  Country: None (occurrence: None)
  Receive Date: 20060605
  Receipt Date: 20060524
  Transmission Date: 20061013
  Serious: Yes (Other)
  Sender: FDA-Public Use
  Company Number: 200612200BCC

PATIENT
  Age: 55 Year
  Sex: Female
  Weight: 74.8435 kg

DRUGS (10)
  1. ASPIRIN [Suspect]
     Dosage: SEE IMAGE
     Route: 048
     Dates: start: 19810101, end: 20051001
  2. ASPIRIN [Suspect]
     Dosage: SEE IMAGE
     Route: 048
     Dates: start: 19810101
  3. ASPIRIN [Suspect]
     Dosage: 81 MG, QD, ORAL
     Route: 048
     Dates: start: 20051201
  4. NEXAVAR [Suspect]
     Indication: METASTASES TO LUNG
     Dosage: 400 MG, BID, ORAL
     Route: 048
     Dates: start: 20060510, end: 20060515
  5. PAZOPANIB (UNCODEABLE ^INVESTIGATIONAL DRUG^) [Suspect]
     Indication: METASTATIC RENAL CELL CARCINOMA
  6. MAXZIDE [Concomitant]
  7. NORVASC [Concomitant]
  8. LASIX [Concomitant]
  9. NEXIUM [Concomitant]
  10. POTASSIUM CHLORIDE [Concomitant]

REACTIONS (18)
  - DEAFNESS [None]
  - DERMATITIS ACNEIFORM [None]
  - DIFFICULTY IN WALKING [None]
  - HYPERTENSION [None]
  - HYPOAESTHESIA [None]
  - LIVER FUNCTION TEST ABNORMAL [None]
  - LOCALISED OEDEMA [None]
  - METASTASES TO LUNG [None]
  - MUSCLE SPASMS [None]
  - OTOTOXICITY [None]
  - PAIN IN EXTREMITY [None]
  - PALMAR-PLANTAR ERYTHRODYSAESTHESIA SYNDROME [None]
  - PARAESTHESIA [None]
  - RASH GENERALISED [None]
  - RENAL CELL CARCINOMA STAGE UNSPECIFIED [None]
  - RENAL FUNCTION TEST ABNORMAL [None]
  - TINNITUS [None]
  - WEIGHT INCREASED [None]
